FAERS Safety Report 21922419 (Version 1)
Quarter: 2023Q1

REPORT INFORMATION
  Report Type: Report from Study
  Country: DE (occurrence: DE)
  Receive Date: 20230128
  Receipt Date: 20230128
  Transmission Date: 20230417
  Serious: Yes (Hospitalization)
  Sender: FDA-Public Use
  Company Number: DE-ABBVIE-4285406

PATIENT
  Age: 61 Year
  Sex: Female
  Weight: 79 kg

DRUGS (1)
  1. SKYRIZI [Suspect]
     Active Substance: RISANKIZUMAB-RZAA
     Indication: Psoriasis
     Route: 058
     Dates: start: 20210624

REACTIONS (4)
  - Supraventricular tachycardia [Recovered/Resolved]
  - Arteriosclerosis coronary artery [Unknown]
  - Hypothyroidism [Unknown]
  - Myocardial injury [Unknown]

NARRATIVE: CASE EVENT DATE: 20210624
